FAERS Safety Report 6918549-6 (Version None)
Quarter: 2010Q3

REPORT INFORMATION
  Report Type: 
  Country: None (occurrence: None)
  Receive Date: 20100722
  Receipt Date: 20090821
  Transmission Date: 20110219
  Serious: Yes (Hospitalization)
  Sender: FDA-Public Use
  Company Number: US-IGSA-IG592

PATIENT
  Age: 58 Year
  Sex: Female
  Weight: 72.5 kg

DRUGS (7)
  1. FLEBOGAMMA 5% DIF [Suspect]
     Indication: MYASTHENIA GRAVIS
     Dosage: 40 G X 2 DAYS IV
     Route: 042
     Dates: start: 20090812, end: 20090813
  2. FLEBOGAMMA 5% DIF [Suspect]
  3. ESCITALOPRAM [Concomitant]
  4. AMITRIPTYLINE HCL [Concomitant]
  5. HYDROMORPHONE [Concomitant]
  6. HYDROCOLORIDO [Concomitant]
  7. RIZATRIPTAN BENZOATE [Concomitant]

REACTIONS (1)
  - HEADACHE [None]
